FAERS Safety Report 11827675 (Version 1)
Quarter: 2015Q4

REPORT INFORMATION
  Report Type: Spontaneous
  Country: CH (occurrence: CH)
  Receive Date: 20151211
  Receipt Date: 20151211
  Transmission Date: 20160305
  Serious: Yes (Death)
  Sender: FDA-Public Use
  Company Number: CH-TEVA-617072ISR

PATIENT

DRUGS (7)
  1. AMITRIPTYLIN [Suspect]
     Active Substance: AMITRIPTYLINE
     Route: 065
  2. ZOLPIDEM [Suspect]
     Active Substance: ZOLPIDEM\ZOLPIDEM TARTRATE
     Route: 065
  3. PARACETAMOL [Suspect]
     Active Substance: ACETAMINOPHEN
     Route: 065
  4. METAMIZOLE [Suspect]
     Active Substance: METAMIZOLE
     Route: 065
  5. ETHANOL [Suspect]
     Active Substance: ALCOHOL
     Route: 065
  6. OXYCODONE [Suspect]
     Active Substance: OXYCODONE
     Route: 065
  7. LEVOMEPROMAZINE [Suspect]
     Active Substance: LEVOMEPROMAZINE
     Route: 065

REACTIONS (1)
  - Poisoning [Fatal]

NARRATIVE: CASE EVENT DATE: 2014
